FAERS Safety Report 15719329 (Version 1)
Quarter: 2018Q4

REPORT INFORMATION
  Report Type: Spontaneous
  Country: MM (occurrence: MM)
  Receive Date: 20181213
  Receipt Date: 20181213
  Transmission Date: 20190205
  Serious: Yes (Death, Other)
  Sender: FDA-Public Use
  Company Number: MM-009507513-1812MMR003538

PATIENT
  Age: 34 Year
  Sex: Female
  Weight: 31 kg

DRUGS (9)
  1. IMIPENEM AND CILASTATIN [Suspect]
     Active Substance: CILASTATIN SODIUM\IMIPENEM
     Indication: TUBERCULOSIS
     Dosage: 1 G TWICE DAILY (6 DAYS PER WEEK)
     Route: 042
     Dates: start: 20180725
  2. AMOXICILLIN (+) CLAVULANATE POTASSIUM [Suspect]
     Active Substance: AMOXICILLIN\CLAVULANATE POTASSIUM
     Dosage: UNK
     Route: 065
     Dates: start: 20070424, end: 201802
  3. LINEZOLID. [Suspect]
     Active Substance: LINEZOLID
     Dosage: TITRATED DOWN TO 300 MG DAILY
     Route: 048
     Dates: start: 20180926
  4. DELAMANID [Suspect]
     Active Substance: DELAMANID
     Indication: TUBERCULOSIS
     Dosage: DOSE OF 100 MG TWICE DAILY
     Route: 048
     Dates: start: 20180725
  5. BEDAQUILINE [Suspect]
     Active Substance: BEDAQUILINE
     Indication: TUBERCULOSIS
     Dosage: DOSE OF 200 MG THRICE WEEKLY
     Route: 048
     Dates: start: 20180725
  6. LINEZOLID. [Suspect]
     Active Substance: LINEZOLID
     Indication: TUBERCULOSIS
     Dosage: UNKNOWN DOSE AND FREQUENCY
     Route: 065
     Dates: start: 20180725, end: 2018
  7. AMOXICILLIN (+) CLAVULANATE POTASSIUM [Suspect]
     Active Substance: AMOXICILLIN\CLAVULANATE POTASSIUM
     Indication: TUBERCULOSIS
     Dosage: DOSE OF 625 MG TWICE DAILY (6 DAYS PER WEEK)
     Route: 065
     Dates: start: 20180725
  8. VITAMIN B COMPLEX [Concomitant]
     Active Substance: CYANOCOBALAMIN\DEXPANTHENOL\NIACINAMIDE\PYRIDOXINE HYDROCHLORIDE\RIBOFLAVIN 5^-PHOSPHATE SODIUM\THIAMINE HYDROCHLORIDE\VITAMIN B COMPLEX
     Indication: MALNUTRITION
     Dosage: UNK
     Dates: start: 20180917
  9. CLOFAZIMINE [Suspect]
     Active Substance: CLOFAZIMINE
     Indication: TUBERCULOSIS
     Dosage: DAILY DOSE OF 100 MG
     Route: 048
     Dates: start: 20180725

REACTIONS (12)
  - Aspartate aminotransferase increased [Unknown]
  - Platelet count increased [Unknown]
  - Tuberculosis [Fatal]
  - Dyspnoea [Fatal]
  - Pneumothorax [Fatal]
  - Respiratory failure [Fatal]
  - Depression [Unknown]
  - Haemoglobin decreased [Unknown]
  - White blood cell count increased [Unknown]
  - Empyema [Fatal]
  - Electrocardiogram QT prolonged [Unknown]
  - Anaemia [Unknown]

NARRATIVE: CASE EVENT DATE: 2018
